FAERS Safety Report 8268160-2 (Version None)
Quarter: 2012Q2

REPORT INFORMATION
  Report Type: 
  Country: None (occurrence: None)
  Receive Date: 20120409
  Receipt Date: 20120403
  Transmission Date: 20120825
  Serious: No
  Sender: FDA-Public Use
  Company Number: US-PFIZER INC-2012037291

PATIENT
  Sex: Female
  Weight: 91 kg

DRUGS (9)
  1. SYNTHROID [Concomitant]
     Indication: THYROID DISORDER
     Dosage: 1 UG, DAILY
     Route: 048
  2. ZETIA [Concomitant]
     Dosage: UNK
  3. METOPROLOL [Concomitant]
     Dosage: UNK
     Dates: start: 20111227
  4. EFFIENT [Concomitant]
     Dosage: UNK
     Dates: start: 20111227
  5. LIPITOR [Suspect]
     Indication: HYPERLIPIDAEMIA
     Dosage: 80 MG, 1X/DAY
     Route: 048
     Dates: start: 20111227, end: 20120102
  6. CRESTOR [Suspect]
     Dosage: 5 MG, 4X/DAY (QID)
  7. LIPITOR [Suspect]
     Indication: ACUTE MYOCARDIAL INFARCTION
     Dosage: 80 MG, 1X/DAY
     Route: 048
     Dates: start: 20120102, end: 20120105
  8. PROZAC [Concomitant]
     Indication: DEPRESSION
     Dosage: 20 MG, DAILY
  9. TRILEPTAL [Concomitant]
     Indication: CONVULSION
     Dosage: 400 MG, 2X/DAY
     Route: 048

REACTIONS (5)
  - BLOOD MAGNESIUM DECREASED [None]
  - MUSCULAR WEAKNESS [None]
  - FATIGUE [None]
  - GAIT DISTURBANCE [None]
  - BLOOD SODIUM DECREASED [None]
